FAERS Safety Report 17599756 (Version 2)
Quarter: 2020Q2

REPORT INFORMATION
  Report Type: Spontaneous
  Country: TR (occurrence: TR)
  Receive Date: 20200330
  Receipt Date: 20200406
  Transmission Date: 20200713
  Serious: Yes (Other)
  Sender: FDA-Public Use
  Company Number: TR-PFIZER INC-2020129772

PATIENT
  Age: 50 Year
  Sex: Female

DRUGS (5)
  1. CALCIUM FOLINATE [Suspect]
     Active Substance: LEUCOVORIN CALCIUM
     Indication: DUCTAL ADENOCARCINOMA OF PANCREAS
     Dosage: 400 MG/M2, CYCLIC 400 MG PER SQUARE METER, 12 CYCLES EVERY TWO WEEKS, 2 H, AFTER 30 MIN, INFUSION
     Route: 042
  2. FLUOROURACIL. [Suspect]
     Active Substance: FLUOROURACIL
     Indication: DUCTAL ADENOCARCINOMA OF PANCREAS
  3. OXALIPLATIN. [Suspect]
     Active Substance: OXALIPLATIN
     Indication: DUCTAL ADENOCARCINOMA OF PANCREAS
     Dosage: 85 MG/M2, CYCLIC (2 H, INFUSION)
     Route: 042
  4. IRINOTECAN HCL [Suspect]
     Active Substance: IRINOTECAN HYDROCHLORIDE
     Indication: DUCTAL ADENOCARCINOMA OF PANCREAS
     Dosage: 150 MG/M2, CYCLIC (150 MG PER SQUARE METER, (12 CYCLES EVERY TWO WEEKS, 90 MIN, INFUSION)
     Route: 042
  5. FLUOROURACIL. [Suspect]
     Active Substance: FLUOROURACIL
     Indication: PANCREATIC CARCINOMA
     Dosage: 2400 MG/M2, CYCLIC (12 CYCLES EVERY TWO WEEKS,INFUSION, (EVERY 14 DAYS), PERIOD OF 46 H)
     Route: 042

REACTIONS (1)
  - Steatohepatitis [Unknown]
